FAERS Safety Report 23857608 (Version 1)
Quarter: 2024Q2

REPORT INFORMATION
  Report Type: Spontaneous
  Country: US (occurrence: US)
  Receive Date: 20240515
  Receipt Date: 20240515
  Transmission Date: 20240715
  Serious: Yes (Other)
  Sender: FDA-Public Use
  Company Number: US-MYLANLABS-2024M1043588

PATIENT
  Age: 72 Year
  Sex: Male

DRUGS (12)
  1. VANCOMYCIN [Suspect]
     Active Substance: VANCOMYCIN
     Indication: Bacterial infection
     Dosage: UNK, DROPS
     Route: 047
  2. VANCOMYCIN [Suspect]
     Active Substance: VANCOMYCIN
     Indication: Pseudomonas infection
  3. VANCOMYCIN [Suspect]
     Active Substance: VANCOMYCIN
     Indication: Keratitis bacterial
  4. TOBRAMYCIN [Suspect]
     Active Substance: TOBRAMYCIN\TOBRAMYCIN SULFATE
     Indication: Bacterial infection
     Dosage: UNK
     Route: 047
  5. TOBRAMYCIN [Suspect]
     Active Substance: TOBRAMYCIN\TOBRAMYCIN SULFATE
     Indication: Pseudomonas infection
  6. TOBRAMYCIN [Suspect]
     Active Substance: TOBRAMYCIN\TOBRAMYCIN SULFATE
     Indication: Keratitis bacterial
  7. POLYMYXIN B SULFATE\TRIMETHOPRIM [Suspect]
     Active Substance: POLYMYXIN B SULFATE\TRIMETHOPRIM
     Indication: Bacterial infection
     Dosage: UNK UNK, QH
     Route: 047
  8. POLYMYXIN B SULFATE\TRIMETHOPRIM [Suspect]
     Active Substance: POLYMYXIN B SULFATE\TRIMETHOPRIM
     Indication: Pseudomonas infection
  9. POLYMYXIN B SULFATE\TRIMETHOPRIM [Suspect]
     Active Substance: POLYMYXIN B SULFATE\TRIMETHOPRIM
     Indication: Keratitis bacterial
  10. IMIPENEM AND CILASTATIN [Suspect]
     Active Substance: CILASTATIN SODIUM\IMIPENEM
     Indication: Bacterial infection
     Dosage: UNK UNK, Q2H
     Route: 065
  11. IMIPENEM AND CILASTATIN [Suspect]
     Active Substance: CILASTATIN SODIUM\IMIPENEM
     Indication: Keratitis bacterial
  12. IMIPENEM AND CILASTATIN [Suspect]
     Active Substance: CILASTATIN SODIUM\IMIPENEM
     Indication: Pseudomonas infection

REACTIONS (2)
  - Drug ineffective [Unknown]
  - Off label use [Unknown]
